FAERS Safety Report 21308236 (Version 1)
Quarter: 2022Q3

REPORT INFORMATION
  Report Type: Spontaneous
  Country: US (occurrence: None)
  Receive Date: 20220907
  Receipt Date: 20220907
  Transmission Date: 20221026
  Serious: Yes (Other)
  Sender: FDA-Public Use
  Company Number: None

PATIENT
  Age: 64 Year
  Sex: Female
  Weight: 69.75 kg

DRUGS (2)
  1. NIFEDIPINE EXTENDED-RELEASE [Suspect]
     Active Substance: NIFEDIPINE
     Indication: Hypertension
     Dosage: OTHER QUANTITY : 1 TABLET(S);?FREQUENCY : DAILY;?
     Route: 048
     Dates: start: 20220830, end: 20220905
  2. multivitamin  One a day 50plus [Concomitant]

REACTIONS (9)
  - Chest discomfort [None]
  - Dyspnoea [None]
  - Joint dislocation [None]
  - Contusion [None]
  - Mass [None]
  - Fatigue [None]
  - Fatigue [None]
  - Cough [None]
  - Limb discomfort [None]

NARRATIVE: CASE EVENT DATE: 20220831
